FAERS Safety Report 23447736 (Version 2)
Quarter: 2024Q1

REPORT INFORMATION
  Report Type: Spontaneous
  Country: US (occurrence: US)
  Receive Date: 20240126
  Receipt Date: 20240223
  Transmission Date: 20240410
  Serious: No
  Sender: FDA-Public Use
  Company Number: US-BAYER-2024A011567

PATIENT
  Sex: Male

DRUGS (2)
  1. CIPRO [Suspect]
     Active Substance: CIPROFLOXACIN HYDROCHLORIDE
     Route: 048
     Dates: start: 19980101
  2. CLINDAMYCIN [Concomitant]
     Active Substance: CLINDAMYCIN

REACTIONS (2)
  - Large intestine polyp [None]
  - Small intestine polyp [None]
